FAERS Safety Report 20608428 (Version 1)
Quarter: 2022Q1

REPORT INFORMATION
  Report Type: Spontaneous
  Country: FR (occurrence: FR)
  Receive Date: 20220317
  Receipt Date: 20220317
  Transmission Date: 20220423
  Serious: Yes (Congenital Anomaly, Other)
  Sender: FDA-Public Use
  Company Number: FR-ABBVIE-22K-056-4317905-00

PATIENT
  Sex: Female
  Weight: 3.25 kg

DRUGS (2)
  1. VALPROATE SODIUM [Suspect]
     Active Substance: VALPROATE SODIUM
     Indication: Maternal exposure timing unspecified
     Route: 064
  2. FOLIC ACID [Concomitant]
     Active Substance: FOLIC ACID
     Indication: Maternal exposure timing unspecified

REACTIONS (39)
  - Dysmorphism [Unknown]
  - Learning disorder [Unknown]
  - Language disorder [Unknown]
  - Dyscalculia [Unknown]
  - Disturbance in attention [Unknown]
  - Scoliosis [Unknown]
  - Disturbance in social behaviour [Unknown]
  - Psychomotor skills impaired [Unknown]
  - Disinhibition [Unknown]
  - Obsessive-compulsive disorder [Unknown]
  - Foetal anticonvulsant syndrome [Unknown]
  - Personal relationship issue [Unknown]
  - Hyperacusis [Unknown]
  - Joint laxity [Unknown]
  - Disturbance in attention [Unknown]
  - Psychiatric symptom [Unknown]
  - Apraxia [Unknown]
  - Developmental delay [Unknown]
  - Educational problem [Unknown]
  - Social problem [Unknown]
  - Hypermetropia [Unknown]
  - Foot deformity [Unknown]
  - Knee deformity [Unknown]
  - Talipes [Unknown]
  - Cardiac murmur [Unknown]
  - Ear, nose and throat disorder [Unknown]
  - Fatigue [Unknown]
  - Anger [Unknown]
  - Anxiety [Unknown]
  - Sleep disorder [Unknown]
  - Nasopharyngitis [Unknown]
  - Eczema [Unknown]
  - Asthma [Unknown]
  - Atopy [Unknown]
  - Urticaria [Unknown]
  - Stress [Unknown]
  - Aggression [Unknown]
  - Food allergy [Unknown]
  - Foetal exposure during pregnancy [Unknown]

NARRATIVE: CASE EVENT DATE: 20050901
